FAERS Safety Report 17107890 (Version 1)
Quarter: 2019Q4

REPORT INFORMATION
  Report Type: Spontaneous
  Country: PL (occurrence: PL)
  Receive Date: 20191203
  Receipt Date: 20191203
  Transmission Date: 20200122
  Serious: Yes (Other)
  Sender: FDA-Public Use
  Company Number: PL-JNJFOC-20191125171

PATIENT
  Age: 55 Year
  Sex: Female

DRUGS (11)
  1. OXYCODONE [Suspect]
     Active Substance: OXYCODONE
     Indication: NEURALGIA
     Dosage: 10 MG, 2TIMES PER DAY
     Route: 065
  2. OXYCODONE [Suspect]
     Active Substance: OXYCODONE
     Dosage: 20MG, 2TIMES PER DAY
     Route: 065
  3. DUROGESIC [Suspect]
     Active Substance: FENTANYL
     Indication: BREAKTHROUGH PAIN
     Dosage: 10 MCG
     Route: 065
  4. NALOXONE [Suspect]
     Active Substance: NALOXONE
     Dosage: 30 MG BID
     Route: 065
  5. NALOXONE W/OXYCODONE [Suspect]
     Active Substance: NALOXONE HYDROCHLORIDE\OXYCODONE HYDROCHLORIDE
     Indication: PRODUCT USED FOR UNKNOWN INDICATION
     Dosage: UNK, 20+10MG
  6. QUTENZA [Concomitant]
     Active Substance: CAPSAICIN
     Dosage: 4 TIMES
     Route: 065
  7. NALOXONE [Suspect]
     Active Substance: NALOXONE
     Indication: PRODUCT USED FOR UNKNOWN INDICATION
     Dosage: 10 MG BID
     Route: 065
  8. TAPENTADOL [Suspect]
     Active Substance: TAPENTADOL
     Indication: PRODUCT USED FOR UNKNOWN INDICATION
     Dosage: 100 MG, 2X PER DAY
     Route: 065
  9. TAPENTADOL [Suspect]
     Active Substance: TAPENTADOL
     Dosage: 150 MG, 2X PER DAY
     Route: 065
  10. SEVREDOL [Suspect]
     Active Substance: MORPHINE
     Indication: NEURALGIA
     Route: 065
  11. PREGABALIN. [Suspect]
     Active Substance: PREGABALIN
     Indication: NEURALGIA
     Dosage: 75 MG BID
     Route: 065

REACTIONS (9)
  - Metastases to bone [Unknown]
  - Disease progression [Recovering/Resolving]
  - Malignant neoplasm progression [Recovering/Resolving]
  - Pain [Unknown]
  - Constipation [Unknown]
  - Swelling [Unknown]
  - Burning sensation [Unknown]
  - Breast cancer metastatic [Unknown]
  - Allodynia [Unknown]
